FAERS Safety Report 4417746-1 (Version None)
Quarter: 2004Q3

REPORT INFORMATION
  Report Type: 
  Country: None (occurrence: None)
  Receive Date: 20040803
  Receipt Date: 20040719
  Transmission Date: 20050211
  Serious: Yes (Hospitalization)
  Sender: FDA-Public Use
  Company Number: 04P-287-0268335-00

PATIENT
  Age: 31 Year
  Sex: Female

DRUGS (4)
  1. NORVIR [Suspect]
     Indication: HIV INFECTION
     Dosage: 100 MG, 2 IN 1 D
     Route: 048
     Dates: start: 20040317
  2. INDINAVIR SULFATE(INDINAVIR SULFATE) [Suspect]
     Indication: HIV INFECTION
     Dosage: 400 MG , 2 IN 1 D
     Route: 048
     Dates: start: 20040317
  3. ZIDOVUDINE W/LAMIVUDINE (ZIDOVUDINE W/LAMIVUDINE) [Suspect]
     Indication: HIV INFECTION
     Dosage: 2 IN 1 D, PER ORAL
     Route: 048
     Dates: start: 20040317
  4. FLUCONAZOLE [Suspect]
     Indication: HIV INFECTION
     Dates: start: 20040317

REACTIONS (4)
  - DRUG INTERACTION [None]
  - HAEMORRHAGE [None]
  - OEDEMA PERIPHERAL [None]
  - PURPURA [None]
